FAERS Safety Report 5939632-8 (Version None)
Quarter: 2008Q4

REPORT INFORMATION
  Report Type: 
  Country: None (occurrence: None)
  Receive Date: 20081030
  Receipt Date: 20081030
  Transmission Date: 20090506
  Serious: Yes (Other)
  Sender: FDA-Public Use
  Company Number: None

PATIENT
  Age: 17 Year
  Sex: Female
  Weight: 84.369 kg

DRUGS (2)
  1. BACTRIM DS [Suspect]
     Indication: SUBCUTANEOUS ABSCESS
     Dosage: ONE TABLET BID PO
     Route: 048
  2. ZOSYN [Suspect]
     Indication: SUBCUTANEOUS ABSCESS
     Dosage: 3.375 GM Q6H IV
     Route: 042

REACTIONS (2)
  - RENAL FAILURE ACUTE [None]
  - TUBULOINTERSTITIAL NEPHRITIS [None]
